FAERS Safety Report 20346515 (Version 2)
Quarter: 2022Q1

REPORT INFORMATION
  Report Type: Spontaneous
  Country: CN (occurrence: CN)
  Receive Date: 20220118
  Receipt Date: 20220123
  Transmission Date: 20220424
  Serious: Yes (Hospitalization, Other)
  Sender: FDA-Public Use
  Company Number: CN-BAYER-2022A005224

PATIENT
  Age: 64 Year
  Sex: Male
  Weight: 60 kg

DRUGS (3)
  1. XARELTO [Suspect]
     Active Substance: RIVAROXABAN
     Indication: Anticoagulant therapy
     Dosage: 15 MG, QD
     Route: 048
     Dates: start: 20211203, end: 20211213
  2. XARELTO [Suspect]
     Active Substance: RIVAROXABAN
     Indication: Anticoagulant therapy
     Dosage: 10 MG, QD
     Route: 048
     Dates: start: 20211214, end: 20211218
  3. ATORVASTATIN CALCIUM [Suspect]
     Active Substance: ATORVASTATIN CALCIUM
     Indication: Lipids abnormal
     Dosage: 20 MG, QD
     Route: 048
     Dates: start: 20211207, end: 20211213

REACTIONS (4)
  - Renal failure [Not Recovered/Not Resolved]
  - Coagulopathy [Recovered/Resolved]
  - Product prescribing issue [Unknown]
  - Inappropriate schedule of product administration [Unknown]

NARRATIVE: CASE EVENT DATE: 20211203
